FAERS Safety Report 10525322 (Version 1)
Quarter: 2014Q4

REPORT INFORMATION
  Report Type: Report from Study
  Country: CA (occurrence: None)
  Receive Date: 20141010
  Receipt Date: 20141010
  Transmission Date: 20150528
  Serious: Yes (Hospitalization)
  Sender: FDA-Public Use
  Company Number: CA-017243

PATIENT
  Age: 78 Year
  Sex: Male

DRUGS (13)
  1. FIRMAGON [Suspect]
     Active Substance: DEGARELIX ACETATE
     Indication: PROSTATE CANCER
     Route: 058
     Dates: start: 20140701
  2. ISMN [Concomitant]
     Active Substance: ISOSORBIDE MONONITRATE
  3. DEXILANT [Concomitant]
     Active Substance: DEXLANSOPRAZOLE
  4. PREGABALIN. [Concomitant]
     Active Substance: PREGABALIN
  5. ATORVASTATIN [Concomitant]
     Active Substance: ATORVASTATIN
  6. BICALUTAMIDE. [Concomitant]
     Active Substance: BICALUTAMIDE
  7. FLURAZEPAM [Concomitant]
     Active Substance: FLURAZEPAM\FLURAZEPAM HYDROCHLORIDE
  8. METOPROLOL [Concomitant]
     Active Substance: METOPROLOL
  9. CIPROFLOXACIN. [Concomitant]
     Active Substance: CIPROFLOXACIN
  10. FLOMAX [Concomitant]
     Active Substance: TAMSULOSIN HYDROCHLORIDE
  11. MIRTAZAPINE. [Concomitant]
     Active Substance: MIRTAZAPINE
  12. JAMP ASA [Concomitant]
  13. ACETAMINOPHEN. [Concomitant]
     Active Substance: ACETAMINOPHEN

REACTIONS (4)
  - Confusional state [None]
  - Incoherent [None]
  - Blood pressure decreased [None]
  - Urinary tract infection [None]

NARRATIVE: CASE EVENT DATE: 20140919
